FAERS Safety Report 10367446 (Version 1)
Quarter: 2014Q3

REPORT INFORMATION
  Report Type: Report from Study
  Country: DE (occurrence: DE)
  Receive Date: 20140807
  Receipt Date: 20140807
  Transmission Date: 20150326
  Serious: No
  Sender: FDA-Public Use
  Company Number: PHHY2014DE096062

PATIENT
  Sex: Female

DRUGS (22)
  1. AMN107 [Suspect]
     Active Substance: NILOTINIB
     Dosage: 600 MG, PER DAY
     Route: 048
     Dates: start: 20110513, end: 20110520
  2. ASTONIN H [Concomitant]
     Dosage: UNK UKN, UNK
  3. GODAMED [Concomitant]
     Dosage: UNK UKN, UNK
     Dates: end: 20110521
  4. AMN107 [Suspect]
     Active Substance: NILOTINIB
     Indication: CHRONIC MYELOID LEUKAEMIA
     Dosage: 600 MG, PER DAY
     Route: 048
     Dates: start: 20110421
  5. AMN107 [Suspect]
     Active Substance: NILOTINIB
     Dosage: 800 MG, PER DAY
     Route: 048
     Dates: start: 20110805
  6. TORASEMID [Concomitant]
     Active Substance: TORSEMIDE
     Dosage: UNK UKN, UNK
     Dates: start: 20110916
  7. AMN107 [Suspect]
     Active Substance: NILOTINIB
     Dosage: 600 MG, PER DAY
     Route: 048
     Dates: start: 20110614
  8. AMN107 [Suspect]
     Active Substance: NILOTINIB
     Dosage: 800 MG, PER DAY
     Route: 048
     Dates: start: 20111014
  9. DECORTIN [Concomitant]
     Active Substance: PREDNISONE
     Dosage: 5 MG, UNK
  10. MOVICOL [Concomitant]
     Active Substance: POLYETHYLENE GLYCOL 3350\POTASSIUM CHLORIDE\SODIUM BICARBONATE\SODIUM CHLORIDE
     Dosage: UNK, PRN
  11. SYREA [Concomitant]
     Active Substance: HYDROXYUREA
     Dosage: UNK UKN, UNK
     Dates: start: 199512, end: 20110513
  12. GODAMED [Concomitant]
     Dosage: UNK UKN, UNK
     Dates: start: 20110602
  13. AMN107 [Suspect]
     Active Substance: NILOTINIB
     Dosage: 400 MG, PER DAY
     Route: 048
     Dates: start: 20110422, end: 20110512
  14. XAGRID [Concomitant]
     Active Substance: ANAGRELIDE HYDROCHLORIDE
     Dosage: 0.5 MG, UNK
     Dates: start: 20110610, end: 20111014
  15. TRIMIPRAMINE [Concomitant]
     Active Substance: TRIMIPRAMINE
     Dosage: 100 MG, UNK
  16. TAVEGIL [Concomitant]
     Active Substance: CLEMASTINE FUMARATE
     Dosage: UNK UKN, UNK
  17. XAGRID [Concomitant]
     Active Substance: ANAGRELIDE HYDROCHLORIDE
     Dosage: UNK UKN, UNK
     Dates: start: 20111115, end: 20120417
  18. NOVALGIN [Concomitant]
     Active Substance: METAMIZOLE SODIUM
     Dosage: UNK UKN, UNK
     Dates: start: 20110520
  19. AMN107 [Suspect]
     Active Substance: NILOTINIB
     Dosage: 600 MG, PER DAY
     Route: 048
     Dates: start: 20110722
  20. OMEPRAZOLE. [Concomitant]
     Active Substance: OMEPRAZOLE
     Dosage: 40 MG, UNK
  21. NOVALGIN [Concomitant]
     Active Substance: METAMIZOLE SODIUM
     Dosage: UNK UKN, UNK
     Dates: start: 20120103
  22. METOPROLOL [Concomitant]
     Active Substance: METOPROLOL
     Dosage: 47.5 MG, UNK
     Dates: start: 20110916

REACTIONS (1)
  - Weight increased [Recovered/Resolved]

NARRATIVE: CASE EVENT DATE: 20110513
